FAERS Safety Report 22325639 (Version 1)
Quarter: 2023Q2

REPORT INFORMATION
  Report Type: Spontaneous
  Country: CN (occurrence: CN)
  Receive Date: 20230516
  Receipt Date: 20230516
  Transmission Date: 20230722
  Serious: Yes (Other)
  Sender: FDA-Public Use
  Company Number: None

PATIENT
  Age: 43 Year
  Sex: Male

DRUGS (6)
  1. MANNITOL [Suspect]
     Active Substance: MANNITOL
     Indication: Oedema
     Dosage: 125 ML,  TWICE DAILY (DOSAGE FORM: INJECTION)
     Route: 041
     Dates: start: 20230504, end: 20230508
  2. MANNITOL [Suspect]
     Active Substance: MANNITOL
     Indication: Analgesic therapy
  3. MANNITOL [Suspect]
     Active Substance: MANNITOL
     Indication: Fracture treatment
  4. PROPACETAMOL HYDROCHLORIDE [Suspect]
     Active Substance: PROPACETAMOL HYDROCHLORIDE
     Indication: Pain
     Dosage: 2 G, TWICE DAILY
     Route: 041
     Dates: start: 20230504, end: 20230508
  5. POLYPEPTIDES [Suspect]
     Active Substance: POLYPEPTIDES
     Indication: Fracture
     Dosage: 24 MG, ONCE DAILY
     Route: 041
     Dates: start: 20230504, end: 20230508
  6. VITAMIN C [Suspect]
     Active Substance: ASCORBIC ACID
     Indication: Hypophagia
     Dosage: 2 G, ONCE A DAY
     Route: 041
     Dates: start: 20230504, end: 20230508

REACTIONS (4)
  - Ocular hyperaemia [Recovering/Resolving]
  - Eye swelling [Recovering/Resolving]
  - Erythema [Recovering/Resolving]
  - Pruritus [Recovering/Resolving]

NARRATIVE: CASE EVENT DATE: 20230508
